FAERS Safety Report 23856596 (Version 3)
Quarter: 2024Q2

REPORT INFORMATION
  Report Type: Spontaneous
  Country: US (occurrence: US)
  Receive Date: 20240515
  Receipt Date: 20240530
  Transmission Date: 20240716
  Serious: No
  Sender: FDA-Public Use
  Company Number: US-JNJFOC-20240446342

PATIENT
  Age: 69 Year
  Sex: Female

DRUGS (2)
  1. MENS ROGAINE EXTRA STRENGTH [Suspect]
     Active Substance: MINOXIDIL
     Indication: Alopecia
     Dosage: HALF OF THE DROPPER. 2 YEARS AGO, USE IT TWICE A DAY, BUT SOMETIMES ONLY USE IT ONCE, NOT USING 1ML
     Route: 061
  2. MENS ROGAINE EXTRA STRENGTH [Suspect]
     Active Substance: MINOXIDIL
     Dosage: HALF OF THE DROPPER. 2 YEARS AGO, USE IT TWICE A DAY, BUT SOMETIMES ONLY USE IT ONCE, NOT USING 1ML
     Route: 061

REACTIONS (2)
  - Off label use [Unknown]
  - Suspected counterfeit product [Unknown]
